FAERS Safety Report 4546859-9 (Version None)
Quarter: 2005Q1

REPORT INFORMATION
  Report Type: 
  Country: None (occurrence: None)
  Receive Date: 20050105
  Receipt Date: 20041216
  Transmission Date: 20050727
  Serious: Yes (Life-Threatening, Hospitalization, Other)
  Sender: FDA-Public Use
  Company Number: GBS040715289

PATIENT
  Sex: Male
  Weight: 3 kg

DRUGS (4)
  1. FLUOXETINE [Suspect]
     Dosage: 20 MG
     Dates: start: 20040203
  2. TRIMETHOPRIM [Concomitant]
  3. HUMAN ACTRAPID (INSULIN HUMAN) [Concomitant]
  4. INSULATARD NPH HUMAN [Concomitant]

REACTIONS (15)
  - DIABETES MELLITUS INSULIN-DEPENDENT [None]
  - DRUG EXPOSURE DURING PREGNANCY [None]
  - DRUG EXPOSURE VIA BREAST MILK [None]
  - HYPOCALCAEMIA [None]
  - HYPOGLYCAEMIA NEONATAL [None]
  - INTRAVENTRICULAR HAEMORRHAGE NEONATAL [None]
  - IRRITABILITY [None]
  - JAUNDICE NEONATAL [None]
  - MENINGITIS CHEMICAL [None]
  - MENINGITIS NEONATAL [None]
  - NEONATAL DIABETES MELLITUS [None]
  - NEONATAL DISORDER [None]
  - PREMATURE BABY [None]
  - SUBDURAL HAEMORRHAGE NEONATAL [None]
  - THALAMUS HAEMORRHAGE [None]
